FAERS Safety Report 12115453 (Version 1)
Quarter: 2016Q1

REPORT INFORMATION
  Report Type: Spontaneous
  Country: US (occurrence: US)
  Receive Date: 20160225
  Receipt Date: 20160225
  Transmission Date: 20160526
  Serious: No
  Sender: FDA-Public Use
  Company Number: US-APOTEX-2015AP008164

PATIENT

DRUGS (2)
  1. KETOCONAZOLE TABLETS USP [Suspect]
     Active Substance: KETOCONAZOLE
     Indication: PRIAPISM
     Dosage: 200 MG, TID
     Route: 048
  2. PREDNISONE. [Concomitant]
     Active Substance: PREDNISONE
     Indication: PRIAPISM
     Dosage: 5 MG, QD
     Route: 065

REACTIONS (2)
  - Vomiting [Unknown]
  - Nausea [Unknown]
